FAERS Safety Report 17824619 (Version 2)
Quarter: 2020Q2

REPORT INFORMATION
  Report Type: Spontaneous
  Country: US (occurrence: US)
  Receive Date: 20200526
  Receipt Date: 20200606
  Transmission Date: 20200714
  Serious: Yes (Death, Hospitalization)
  Sender: FDA-Public Use
  Company Number: US-TEVA-2020-US-1239337

PATIENT
  Age: 70 Year
  Sex: Female

DRUGS (1)
  1. HYDRALAZINE [Suspect]
     Active Substance: HYDRALAZINE HYDROCHLORIDE
     Indication: HYPERTENSION
     Dosage: 300 MILLIGRAM DAILY;
     Route: 048

REACTIONS (3)
  - Fluid overload [Unknown]
  - Renal haemorrhage [Fatal]
  - Anti-neutrophil cytoplasmic antibody positive vasculitis [Recovering/Resolving]
